FAERS Safety Report 8662639 (Version 2)
Quarter: 2012Q4

REPORT INFORMATION
  Report Type: 
  Country: NO (occurrence: NO)
  Receive Date: 20120712
  Receipt Date: 20121019
  Transmission Date: 20130627
  Serious: Yes (Death)
  Sender: FDA-Public Use
  Company Number: NO-ROXANE LABORATORIES, INC.-2012-RO-01524RO

PATIENT
  Age: 64 Year
  Sex: Female

DRUGS (6)
  1. DIAZEPAM [Suspect]
  2. ZOLPIDEM [Suspect]
  3. CITALOPRAM [Suspect]
  4. PARACETAMOL/CODEINE [Suspect]
  5. NITRAZEPAM [Suspect]
  6. AMITRIPTYLINE [Suspect]

REACTIONS (1)
  - Toxicity to various agents [Fatal]
